FAERS Safety Report 11917038 (Version 2)
Quarter: 2016Q2

REPORT INFORMATION
  Report Type: Spontaneous
  Country: US (occurrence: US)
  Receive Date: 20160114
  Receipt Date: 20160419
  Transmission Date: 20160815
  Serious: Yes (Hospitalization)
  Sender: FDA-Public Use
  Company Number: US-BAXTER-2015BAX070861

PATIENT
  Age: 85 Year
  Sex: Female

DRUGS (1)
  1. DIANEAL LOW CALCIUM PERITONEAL DIALYSIS SOLUTION WITH DEXTROSE [Suspect]
     Active Substance: CALCIUM CHLORIDE\DEXTROSE\MAGNESIUM CHLORIDE\SODIUM CHLORIDE\SODIUM LACTATE
     Indication: PERITONEAL DIALYSIS
     Route: 033

REACTIONS (5)
  - Staphylococcal infection [Recovering/Resolving]
  - Swelling [Unknown]
  - Cervical vertebral fracture [Recovering/Resolving]
  - Road traffic accident [Unknown]
  - Multiple fractures [Recovering/Resolving]

NARRATIVE: CASE EVENT DATE: 201512
